FAERS Safety Report 13844724 (Version 1)
Quarter: 2017Q3

REPORT INFORMATION
  Report Type: Spontaneous
  Country: AT (occurrence: AT)
  Receive Date: 20170808
  Receipt Date: 20170808
  Transmission Date: 20171127
  Serious: Yes (Death, Hospitalization, Other)
  Sender: FDA-Public Use
  Company Number: AT-UCBSA-2017030564

PATIENT
  Age: 97 Year
  Sex: Female

DRUGS (2)
  1. NEUPRO [Suspect]
     Active Substance: ROTIGOTINE
     Dosage: 8 MG, ONCE DAILY (QD)
     Route: 062
  2. NEUPRO [Suspect]
     Active Substance: ROTIGOTINE
     Indication: PAIN IN EXTREMITY
     Dosage: 1 MG, ONCE DAILY (QD)
     Route: 062

REACTIONS (7)
  - Overdose [Unknown]
  - Drug dispensing error [Unknown]
  - Anxiety [Unknown]
  - Myocardial infarction [Fatal]
  - Agitation [Unknown]
  - Confusional state [Unknown]
  - Disorientation [Unknown]
